FAERS Safety Report 10800935 (Version 2)
Quarter: 2015Q1

REPORT INFORMATION
  Report Type: Spontaneous
  Country: US (occurrence: US)
  Receive Date: 20150216
  Receipt Date: 20150216
  Transmission Date: 20150721
  Serious: No
  Sender: FDA-Public Use
  Company Number: US-ALLERGAN-1419098US

PATIENT
  Age: 74 Year
  Sex: Female

DRUGS (1)
  1. RESTASIS [Suspect]
     Active Substance: CYCLOSPORINE
     Indication: DRY EYE
     Dosage: 2 GTT, BID

REACTIONS (4)
  - Oropharyngeal pain [Recovered/Resolved]
  - Tongue disorder [Recovered/Resolved]
  - Swollen tongue [Recovered/Resolved]
  - Hypoaesthesia oral [Recovered/Resolved]
